FAERS Safety Report 21382607 (Version 2)
Quarter: 2022Q4

REPORT INFORMATION
  Report Type: Spontaneous
  Country: CZ (occurrence: CZ)
  Receive Date: 20220927
  Receipt Date: 20221004
  Transmission Date: 20230112
  Serious: Yes (Death, Other)
  Sender: FDA-Public Use
  Company Number: CZ-AMGEN-CZESP2022162664

PATIENT
  Age: 32 Year
  Sex: Female

DRUGS (3)
  1. EVOLOCUMAB [Suspect]
     Active Substance: EVOLOCUMAB
     Indication: Type IIa hyperlipidaemia
     Dosage: UNK
     Route: 065
     Dates: start: 2013, end: 201609
  2. WARFARIN [Concomitant]
     Active Substance: WARFARIN
     Indication: Coagulopathy
     Dosage: UNK
     Dates: start: 2015
  3. HEPARIN [Concomitant]
     Active Substance: HEPARIN SODIUM
     Dosage: UNK
     Dates: start: 201609

REACTIONS (7)
  - Death [Fatal]
  - Cardiac arrest [Unknown]
  - Myocardial ischaemia [Unknown]
  - Vascular stent thrombosis [Unknown]
  - Aortic valve stenosis [Unknown]
  - Aortic dilatation [Unknown]
  - Maternal exposure during pregnancy [Unknown]

NARRATIVE: CASE EVENT DATE: 20150101
